FAERS Safety Report 9388889 (Version 1)
Quarter: 2013Q3

REPORT INFORMATION
  Report Type: Spontaneous
  Country: BR (occurrence: BR)
  Receive Date: 20130708
  Receipt Date: 20130708
  Transmission Date: 20140515
  Serious: Yes (Other)
  Sender: FDA-Public Use
  Company Number: BR-AMGEN-BRASP2013026675

PATIENT
  Age: 43 Year
  Sex: Male
  Weight: 55 kg

DRUGS (8)
  1. ENBREL [Suspect]
     Indication: ANKYLOSING SPONDYLITIS
     Dosage: 50 MG, 1X/WEEK
     Route: 058
     Dates: start: 20120328
  2. MELOXICAM [Concomitant]
     Dosage: UNSPECIFIED DOSAGE, 1X/DAY (AFTER LUNCH)
     Dates: start: 20130213
  3. PREDNISONE [Concomitant]
     Dosage: UNSPECIFIED DOSE, 1X/DAY (AFTER LUNCH)
  4. FOLIC ACID [Concomitant]
     Dosage: UNSPECIFIED DOSE, ONCE A WEEK (TUESDAY)
     Dates: start: 20130220
  5. METHOTREXATE [Concomitant]
     Dosage: UNSPECIFIED DOSE, ONCE A WEEK (TUESDAY)
     Dates: start: 20130220
  6. DEPROZOL [Concomitant]
     Dosage: 8 DROPS, ONCE A DAY (BEFORE LUNCH)
  7. DEPURA [Concomitant]
     Indication: BONE DISORDER
     Dosage: UNK
     Dates: start: 20130213
  8. FAMOTIDINA [Concomitant]
     Dosage: UNK

REACTIONS (7)
  - Hypersensitivity [Unknown]
  - Injection site mass [Unknown]
  - Uveitis [Recovered/Resolved]
  - Injection site pruritus [Unknown]
  - Injection site erythema [Unknown]
  - Nasopharyngitis [Not Recovered/Not Resolved]
  - Influenza [Not Recovered/Not Resolved]
